FAERS Safety Report 20432544 (Version 1)
Quarter: 2022Q1

REPORT INFORMATION
  Report Type: Spontaneous
  Country: US (occurrence: US)
  Receive Date: 20220204
  Receipt Date: 20220204
  Transmission Date: 20220423
  Serious: Yes (Hospitalization)
  Sender: FDA-Public Use
  Company Number: US-Fresenius Medical Care Renal Therapies Group-FMC-2202-000210

PATIENT
  Sex: Male

DRUGS (1)
  1. DELFLEX [Suspect]
     Active Substance: CALCIUM CHLORIDE\DEXTROSE\MAGNESIUM CHLORIDE\SODIUM CHLORIDE\SODIUM LACTATE
     Indication: End stage renal disease
     Dosage: CCPD CYCLE BASED: FILLS 5; FILL VOLUME 2500 ML; LAST FILL VOLUME 1500 ML; TOTAL VOLUME 11500 ML; TOT
     Route: 033

REACTIONS (3)
  - Confusional state [Unknown]
  - Blood electrolytes decreased [Unknown]
  - Treatment noncompliance [Unknown]
